FAERS Safety Report 5024726-4 (Version None)
Quarter: 2006Q2

REPORT INFORMATION
  Report Type: 
  Country: None (occurrence: None)
  Receive Date: 20060426
  Receipt Date: 20060301
  Transmission Date: 20061013
  Serious: Yes (Other)
  Sender: FDA-Public Use
  Company Number: 2006030236

PATIENT
  Sex: 0

DRUGS (2)
  1. LYRICA [Suspect]
     Indication: TRIGEMINAL NEURALGIA
     Dosage: 250 MG (250 MG, 1 IN 1 D),
  2. TEGRETOL [Concomitant]

REACTIONS (1)
  - DRUG INEFFECTIVE [None]
